FAERS Safety Report 4618604-X (Version None)
Quarter: 2005Q1

REPORT INFORMATION
  Report Type: 
  Country: None (occurrence: None)
  Receive Date: 20050324
  Receipt Date: 20050307
  Transmission Date: 20050727
  Serious: Yes (Hospitalization)
  Sender: FDA-Public Use
  Company Number: 200503IM000058

PATIENT
  Age: 51 Year
  Sex: Male
  Weight: 83.9154 kg

DRUGS (6)
  1. INFERGEN (INTERFERON ALCACON-1) [Suspect]
     Indication: HEPATITIS C
     Dosage: 15 UG, QOD, SUBCUTANEOUS
     Route: 058
     Dates: start: 20040901, end: 20041201
  2. RIBAVIRIN [Concomitant]
  3. LEXAPRO [Concomitant]
  4. LANOXIN [Concomitant]
  5. PERSANTINE [Concomitant]
  6. CAPTOPRIL [Concomitant]

REACTIONS (1)
  - CARDIAC DISORDER [None]
